FAERS Safety Report 11647518 (Version 1)
Quarter: 2015Q4

REPORT INFORMATION
  Report Type: Spontaneous
  Country: US (occurrence: None)
  Receive Date: 20151019
  Receipt Date: 20151019
  Transmission Date: 20160304
  Serious: Yes (Hospitalization, Other)
  Sender: FDA-Public Use
  Company Number: 2015US0614

PATIENT
  Age: 2 Year
  Sex: Female

DRUGS (2)
  1. KINERET [Suspect]
     Active Substance: ANAKINRA
     Indication: CHRONIC INFANTILE NEUROLOGICAL CUTANEOUS AND ARTICULAR SYNDROME
     Route: 058
     Dates: start: 201501, end: 201507
  2. STEROIDS (CORTICOSTEROIDS) [Concomitant]
     Active Substance: UNSPECIFIED INGREDIENT

REACTIONS (7)
  - Drug ineffective [None]
  - Rash generalised [None]
  - Lethargy [None]
  - Somnolence [None]
  - Hepatic enzyme increased [None]
  - Drug effect decreased [None]
  - Liver disorder [None]

NARRATIVE: CASE EVENT DATE: 201506
